FAERS Safety Report 24318096 (Version 2)
Quarter: 2025Q2

REPORT INFORMATION
  Report Type: Spontaneous
  Country: US (occurrence: US)
  Receive Date: 20240913
  Receipt Date: 20250607
  Transmission Date: 20250717
  Serious: No
  Sender: STEMLINE THERAPEUTICS
  Company Number: US-Stemline Therapeutics, Inc.-2024ST003864

PATIENT
  Age: 72 Year
  Sex: Female

DRUGS (7)
  1. ORSERDU [Suspect]
     Active Substance: ELACESTRANT
     Indication: Product used for unknown indication
  2. LEVOTHYROXINE SODIUM [Concomitant]
     Active Substance: LEVOTHYROXINE SODIUM
     Indication: Product used for unknown indication
  3. FISH OIL [Concomitant]
     Active Substance: FISH OIL
     Indication: Product used for unknown indication
  4. VITAMIN D [Concomitant]
     Active Substance: VITAMIN D NOS
     Indication: Product used for unknown indication
  5. EQ Famotidine Max [Concomitant]
     Indication: Product used for unknown indication
  6. Tums E-X 750 [Concomitant]
     Indication: Product used for unknown indication
  7. FT Ibuprofen [Concomitant]
     Indication: Product used for unknown indication

REACTIONS (2)
  - Eructation [Recovering/Resolving]
  - Nausea [Recovering/Resolving]
